FAERS Safety Report 4871768-5 (Version None)
Quarter: 2005Q4

REPORT INFORMATION
  Report Type: 
  Country: None (occurrence: None)
  Receive Date: 20051230
  Receipt Date: 20051220
  Transmission Date: 20060501
  Serious: Yes (Other)
  Sender: FDA-Public Use
  Company Number: CIP05002165

PATIENT
  Age: 56 Year
  Sex: Female
  Weight: 69.8 kg

DRUGS (3)
  1. ACTONEL [Suspect]
     Indication: OSTEOPOROSIS
     Dosage: 25 MG ONCE WEKLY, ORAL
     Route: 048
     Dates: start: 20050701, end: 20050801
  2. EVISTA [Concomitant]
  3. SYNTHROID (LEVOTHYROIXNE SODIUM) [Concomitant]

REACTIONS (8)
  - CHILLS [None]
  - CONSTIPATION [None]
  - DIARRHOEA [None]
  - NAUSEA [None]
  - NEPHROLITHIASIS [None]
  - PYREXIA [None]
  - RENAL COLIC [None]
  - VOMITING [None]
